FAERS Safety Report 4767558-4 (Version None)
Quarter: 2005Q3

REPORT INFORMATION
  Report Type: 
  Country: None (occurrence: None)
  Receive Date: 20050913
  Receipt Date: 20050907
  Transmission Date: 20060218
  Serious: Yes (Death)
  Sender: FDA-Public Use
  Company Number: US-JNJFOC-20050901646

PATIENT
  Age: 56 Year
  Sex: Male

DRUGS (7)
  1. ACETAMINOPHEN [Suspect]
     Route: 048
  2. ACETAMINOPHEN [Suspect]
     Route: 048
  3. ASPIRIN [Suspect]
     Route: 048
  4. METFORMIN [Suspect]
     Route: 048
  5. PAROXETINE [Suspect]
     Route: 048
  6. HYDROCODONE [Suspect]
     Indication: SUICIDE ATTEMPT
     Route: 065
  7. COCAINE [Suspect]
     Indication: SUICIDE ATTEMPT
     Route: 065

REACTIONS (4)
  - COMPLETED SUICIDE [None]
  - INTENTIONAL MISUSE [None]
  - METABOLIC ACIDOSIS [None]
  - UPPER GASTROINTESTINAL HAEMORRHAGE [None]
